FAERS Safety Report 14548005 (Version 1)
Quarter: 2018Q1

REPORT INFORMATION
  Report Type: Spontaneous
  Country: ZA (occurrence: ZA)
  Receive Date: 20180219
  Receipt Date: 20180219
  Transmission Date: 20180509
  Serious: Yes (Hospitalization)
  Sender: FDA-Public Use
  Company Number: ZA-PFIZER INC-2018064402

PATIENT
  Age: 75 Year
  Sex: Female

DRUGS (5)
  1. XALATAN [Suspect]
     Active Substance: LATANOPROST
     Dosage: 50 UG, UNK
  2. GLUCOPHAGE [Suspect]
     Active Substance: METFORMIN HYDROCHLORIDE
     Dosage: 1000 MG, UNK
  3. RAMIPRIL HEXAL [Suspect]
     Active Substance: RAMIPRIL
     Dosage: 2.5 MG, UNK
  4. AZOPTIC [Suspect]
     Active Substance: BRINZOLAMIDE
     Dosage: 1 UNK, UNK
  5. ADCO-SIMVASTATIN [Suspect]
     Active Substance: SIMVASTATIN
     Dosage: 10 MG, UNK

REACTIONS (1)
  - Neoplasm malignant [Not Recovered/Not Resolved]
